FAERS Safety Report 4616586-8 (Version None)
Quarter: 2005Q2

REPORT INFORMATION
  Report Type: 
  Country: None (occurrence: None)
  Receive Date: 20050311
  Receipt Date: 20050107
  Transmission Date: 20051028
  Serious: No
  Sender: FDA-Public Use
  Company Number: 2005-00021

PATIENT
  Age: 66 Year
  Sex: Female
  Weight: 69.8 kg

DRUGS (3)
  1. VELCADE [Suspect]
     Indication: MULTIPLE MYELOMA
     Dosage: 1.30 MG/M2, IV BOLUS
     Route: 040
     Dates: start: 20040701, end: 20041201
  2. NEURONTIN [Concomitant]
  3. PREVACID [Concomitant]

REACTIONS (1)
  - NEUROPATHY PERIPHERAL [None]
